FAERS Safety Report 4560020-3 (Version None)
Quarter: 2005Q1

REPORT INFORMATION
  Report Type: 
  Country: None (occurrence: None)
  Receive Date: 20050125
  Receipt Date: 20050113
  Transmission Date: 20050727
  Serious: Yes (Hospitalization)
  Sender: FDA-Public Use
  Company Number: US-JNJFOC-20050103267

PATIENT
  Sex: Female
  Weight: 78.93 kg

DRUGS (24)
  1. INFLIXIMAB [Suspect]
     Indication: RHEUMATOID ARTHRITIS
     Route: 042
  2. ALLEGRA [Concomitant]
  3. ASPIRIN [Concomitant]
  4. CALCIUM GLUCONATE [Concomitant]
  5. CELEXA [Concomitant]
  6. FISH OIL [Concomitant]
  7. METAMUCIL-2 [Concomitant]
  8. MIACALCIN [Concomitant]
  9. MULTI-VITAMIN [Concomitant]
  10. MULTI-VITAMIN [Concomitant]
  11. MULTI-VITAMIN [Concomitant]
  12. MULTI-VITAMIN [Concomitant]
  13. MULTI-VITAMIN [Concomitant]
  14. MULTI-VITAMIN [Concomitant]
  15. MULTI-VITAMIN [Concomitant]
  16. MULTI-VITAMIN [Concomitant]
  17. PRINIVIL [Concomitant]
  18. VIOXX [Concomitant]
  19. PROTONIX [Concomitant]
  20. TOPIMAX [Concomitant]
  21. LIPITOR [Concomitant]
  22. MUCINEX [Concomitant]
  23. MELORMIN [Concomitant]
  24. METFORMIN HCL [Concomitant]

REACTIONS (1)
  - BREAST CANCER [None]
